FAERS Safety Report 10676896 (Version 3)
Quarter: 2015Q2

REPORT INFORMATION
  Report Type: Report from Study
  Country: JP (occurrence: JP)
  Receive Date: 20141226
  Receipt Date: 20150406
  Transmission Date: 20150821
  Serious: Yes (Life-Threatening)
  Sender: FDA-Public Use
  Company Number: JP-GLAXOSMITHKLINE-A201313815

PATIENT
  Age: 69 Year
  Sex: Female
  Weight: 42 kg

DRUGS (5)
  1. DORAL [Concomitant]
     Active Substance: QUAZEPAM
     Dosage: 20 MG, QD
     Dates: start: 20131016, end: 20131110
  2. LAMOTRIGINE. [Suspect]
     Active Substance: LAMOTRIGINE
     Indication: BIPOLAR I DISORDER
     Dosage: 25 MG, QD
     Route: 048
     Dates: start: 20131016, end: 20131030
  3. ZYPREXA [Concomitant]
     Active Substance: OLANZAPINE
     Indication: MANIA
     Dosage: UNK
     Dates: start: 20131016, end: 20131110
  4. PL [Suspect]
     Active Substance: ACETAMINOPHEN\CAFFEINE\PROMETHAZINE\SALICYLAMIDE
     Route: 048
  5. LAMOTRIGINE. [Suspect]
     Active Substance: LAMOTRIGINE
     Dosage: 50 MG, QD
     Route: 048
     Dates: start: 20131101, end: 20131109

REACTIONS (2)
  - Hepatic function abnormal [Recovered/Resolved]
  - Rash [Recovered/Resolved]

NARRATIVE: CASE EVENT DATE: 20131109
